FAERS Safety Report 17125049 (Version 1)
Quarter: 2019Q4

REPORT INFORMATION
  Report Type: Report from Study
  Country: US (occurrence: US)
  Receive Date: 20191206
  Receipt Date: 20191206
  Transmission Date: 20200122
  Serious: Yes (Hospitalization, Other)
  Sender: FDA-Public Use
  Company Number: US-GILEAD-2019-0441393

PATIENT
  Age: 34 Year
  Sex: Female

DRUGS (25)
  1. AZTREONAM LYSINE [Suspect]
     Active Substance: AZTREONAM LYSINE
     Indication: CYSTIC FIBROSIS
     Dosage: 75 MG, TID
     Route: 055
     Dates: start: 20131108
  2. AZITHROMYCIN ANHYDROUS. [Concomitant]
     Active Substance: AZITHROMYCIN ANHYDROUS
  3. VIT E [TOCOPHERYL ACETATE] [Concomitant]
  4. GABAPENTIN. [Concomitant]
     Active Substance: GABAPENTIN
  5. LANTUS [Concomitant]
     Active Substance: INSULIN GLARGINE
  6. LEVOTHYROXINE. [Concomitant]
     Active Substance: LEVOTHYROXINE
  7. MEPHYTON [Concomitant]
     Active Substance: PHYTONADIONE
  8. NASONEX [Concomitant]
     Active Substance: MOMETASONE FUROATE
  9. PANCREASE [PANCREATIN] [Concomitant]
  10. SYMBICORT [Concomitant]
     Active Substance: BUDESONIDE\FORMOTEROL FUMARATE DIHYDRATE
  11. XOPENEX [Concomitant]
     Active Substance: LEVALBUTEROL HYDROCHLORIDE
  12. ALBUTEROL [SALBUTAMOL] [Concomitant]
     Active Substance: ALBUTEROL
  13. VITAMINS NOS [Concomitant]
     Active Substance: VITAMINS
  14. SINGULAIR [Concomitant]
     Active Substance: MONTELUKAST SODIUM
  15. CALCIUM CARBONATE. [Concomitant]
     Active Substance: CALCIUM CARBONATE
  16. TOBI [Concomitant]
     Active Substance: TOBRAMYCIN
  17. FERREX [Concomitant]
     Active Substance: FERRIC POLYSACCHARIDE COMPLEX
  18. RANITIDINE. [Concomitant]
     Active Substance: RANITIDINE
  19. SUDAFED [Concomitant]
     Active Substance: PSEUDOEPHEDRINE HYDROCHLORIDE
  20. BUPROPION. [Concomitant]
     Active Substance: BUPROPION
  21. HYDROXYZINE [Concomitant]
     Active Substance: HYDROXYZINE HYDROCHLORIDE
  22. NOVOLOG [Concomitant]
     Active Substance: INSULIN ASPART
  23. OMEPRAZOLE. [Concomitant]
     Active Substance: OMEPRAZOLE
  24. METOCLOPRAM [Concomitant]
     Active Substance: METOCLOPRAMIDE
  25. VANCOMYCIN [Concomitant]
     Active Substance: VANCOMYCIN

REACTIONS (3)
  - Pneumonia [Unknown]
  - Lung disorder [Unknown]
  - Cystitis noninfective [Unknown]

NARRATIVE: CASE EVENT DATE: 20191115
